FAERS Safety Report 20566955 (Version 1)
Quarter: 2022Q1

REPORT INFORMATION
  Report Type: Spontaneous
  Country: US (occurrence: US)
  Receive Date: 20220308
  Receipt Date: 20220308
  Transmission Date: 20220423
  Serious: No
  Sender: FDA-Public Use
  Company Number: US-JNJFOC-20220309789

PATIENT
  Age: 32 Year
  Sex: Female

DRUGS (1)
  1. CHILDRENS MOTRIN [Suspect]
     Active Substance: IBUPROFEN
     Indication: Product used for unknown indication
     Dosage: STRENGTH: 100 MG/5 ML.
     Route: 065

REACTIONS (2)
  - Drug hypersensitivity [Unknown]
  - Product administered to patient of inappropriate age [Unknown]
